FAERS Safety Report 14233922 (Version 1)
Quarter: 2017Q4

REPORT INFORMATION
  Report Type: Spontaneous
  Country: US (occurrence: US)
  Receive Date: 20171128
  Receipt Date: 20171128
  Transmission Date: 20180321
  Serious: Yes (Death, Hospitalization)
  Sender: FDA-Public Use
  Company Number: US-RICON PHARMA, LLC-RIC201711-000597

PATIENT
  Age: 15 Year
  Sex: Female
  Weight: 41 kg

DRUGS (2)
  1. LIDOCAINE. [Suspect]
     Active Substance: LIDOCAINE
     Indication: STOMATITIS
  2. LEVETIRACETAM. [Concomitant]
     Active Substance: LEVETIRACETAM

REACTIONS (5)
  - Brain death [Fatal]
  - Seizure [Not Recovered/Not Resolved]
  - Cardiac arrest [Not Recovered/Not Resolved]
  - Intentional overdose [Fatal]
  - Toxicity to various agents [Not Recovered/Not Resolved]
